FAERS Safety Report 18797004 (Version 2)
Quarter: 2021Q1

REPORT INFORMATION
  Report Type: Spontaneous
  Country: US (occurrence: US)
  Receive Date: 20210127
  Receipt Date: 20210208
  Transmission Date: 20210419
  Serious: Yes (Other)
  Sender: FDA-Public Use
  Company Number: US-BAXTER-2021BAX001248

PATIENT
  Age: 32 Year
  Sex: Female

DRUGS (4)
  1. EPINEPHRINE. [Concomitant]
     Active Substance: EPINEPHRINE
     Indication: EPIDURAL ANAESTHESIA
     Dosage: A 3 ML TEST DOSE OF 1.5% LIDOCAINE WITH EPINEPHRINE 1:200,000 WAS RAPIDLY ADMINISTERED.
     Route: 008
  2. LIDOCAINE HYDROCHLORIDE AND DEXTROSE [Suspect]
     Active Substance: DEXTROSE\LIDOCAINE HYDROCHLORIDE
     Indication: EPIDURAL ANAESTHESIA
     Dosage: TEST DOSE
     Route: 008
  3. LIDOCAINE HYDROCHLORIDE AND DEXTROSE [Suspect]
     Active Substance: DEXTROSE\LIDOCAINE HYDROCHLORIDE
     Route: 008
  4. SALINE [Concomitant]
     Active Substance: SODIUM CHLORIDE
     Indication: EPIDURAL ANAESTHESIA
     Dosage: AGITATED SALINE INJECTATE
     Route: 008

REACTIONS (4)
  - Hypotension [Recovering/Resolving]
  - Dizziness [Recovering/Resolving]
  - Nausea [Recovering/Resolving]
  - Maternal exposure during delivery [Recovering/Resolving]
